FAERS Safety Report 10219136 (Version 1)
Quarter: 2014Q2

REPORT INFORMATION
  Report Type: Spontaneous
  Country: FR (occurrence: FR)
  Receive Date: 20140605
  Receipt Date: 20140605
  Transmission Date: 20141212
  Serious: Yes (Hospitalization)
  Sender: FDA-Public Use
  Company Number: PHHY2014FR066806

PATIENT
  Age: 86 Year
  Sex: Female

DRUGS (5)
  1. LOXEN [Suspect]
     Indication: HYPERTENSION
     Dosage: 20 MG, UNK
     Route: 048
     Dates: start: 20140323, end: 20140504
  2. LOXEN [Suspect]
     Dosage: 40 MG, PER DAY
     Dates: start: 20140505, end: 20140516
  3. BISOPROLOL [Suspect]
     Indication: HYPERTENSION
     Dosage: 10 MG, UNK
     Route: 048
     Dates: start: 20140323, end: 20140413
  4. BISOPROLOL [Suspect]
     Dosage: 5 MG, PER DAY
     Dates: start: 20140414, end: 20140516
  5. FOSAVANCE [Suspect]
     Indication: OSTEOPOROSIS
     Dosage: UNK UKN, UNK
     Route: 048
     Dates: end: 20140516

REACTIONS (2)
  - Lip oedema [Recovering/Resolving]
  - Mouth ulceration [Unknown]
